FAERS Safety Report 7564382-4 (Version None)
Quarter: 2011Q2

REPORT INFORMATION
  Report Type: 
  Country: None (occurrence: None)
  Receive Date: 20110622
  Receipt Date: 20110609
  Transmission Date: 20111010
  Serious: Yes (Other)
  Sender: FDA-Public Use
  Company Number: PHHY2011JP51923

PATIENT
  Sex: Male

DRUGS (8)
  1. METHYLPREDNISOLONE SODIUM SUCCINATE [Concomitant]
     Indication: RENAL TRANSPLANT
     Dosage: UNK UKN, UNK
     Dates: start: 20080711, end: 20080716
  2. PROGRAF [Suspect]
     Indication: RENAL TRANSPLANT
     Dosage: UNK UKN, UNK
     Dates: start: 20080902
  3. SIMULECT [Suspect]
     Dosage: 20 MG, UNK
     Route: 042
     Dates: start: 20080715, end: 20080715
  4. NEORAL [Suspect]
     Indication: RENAL TRANSPLANT
     Dosage: 450 MG, UNK
     Route: 048
     Dates: start: 20080709, end: 20080901
  5. CELLCEPT [Concomitant]
     Indication: RENAL TRANSPLANT
     Dosage: 250 MG, UNK
     Dates: start: 20080701
  6. RABEPRAZOLE SODIUM [Concomitant]
     Indication: PROPHYLAXIS AGAINST GASTROINTESTINAL ULCER
     Dosage: 10 MG, UNK
     Dates: start: 20080713, end: 20081224
  7. MEDROL [Suspect]
     Indication: RENAL TRANSPLANT
     Dosage: UNK UKN, UNK
     Dates: start: 20080717
  8. SIMULECT [Suspect]
     Indication: RENAL TRANSPLANT
     Dosage: 20 MG, UNK
     Route: 042
     Dates: start: 20080711, end: 20080711

REACTIONS (4)
  - HYPERURICAEMIA [None]
  - KIDNEY TRANSPLANT REJECTION [None]
  - ARRHYTHMIA [None]
  - HYPERLIPIDAEMIA [None]
